FAERS Safety Report 8620022 (Version 2)
Quarter: 2014Q1

REPORT INFORMATION
  Report Type: Spontaneous
  Country: US (occurrence: None)
  Receive Date: 20120323
  Receipt Date: 20130305
  Transmission Date: 20141002
  Serious: Yes (Hospitalization)
  Sender: FDA-Public Use
  Company Number: 163-21880-11070453

PATIENT
  Age: 63 Year
  Sex: Female

DRUGS (9)
  1. REVLIMID [Suspect]
     Indication: PLASMA CELL MYELOMA
     Dosage: 25 MG, /21 CAPS, PO
     Route: 048
     Dates: start: 20110315, end: 2011
  2. SIMVASTATIN [Concomitant]
  3. POTASSIUM CITRATE [Concomitant]
  4. FUROSEMIDE (FUROSEMIDE) [Concomitant]
  5. OMEPRAZOLE [Concomitant]
  6. ENDOCET (OXYCOCET) (TABLET) (PARACETAMOL, OXYCODONE HYDROCHLORIDE) [Concomitant]
  7. DIAZEPAM (DIAZEPAM) [Concomitant]
  8. ZOMETA (ZOLEDRONIC ACID) [Concomitant]
  9. VELCADE [Concomitant]

REACTIONS (2)
  - Localised infection [None]
  - Localised infection [None]
